FAERS Safety Report 4507412-6 (Version None)
Quarter: 2004Q4

REPORT INFORMATION
  Report Type: 
  Country: None (occurrence: None)
  Receive Date: 20041118
  Receipt Date: 20041105
  Transmission Date: 20050328
  Serious: Yes (Other)
  Sender: FDA-Public Use
  Company Number: 2004090165

PATIENT
  Sex: Female
  Weight: 64.8644 kg

DRUGS (5)
  1. CELEBREX [Suspect]
     Indication: RHEUMATOID ARTHRITIS
     Dosage: 200 MG (200 MG, DAILY INTERVAL:  EVERY DAY), ORAL
     Route: 048
     Dates: start: 19950101
  2. ARTHROTEC [Suspect]
     Indication: RHEUMATOID ARTHRITIS
     Dosage: (DAILY INTERVAL:  EVERY DAY), ORAL
     Route: 048
  3. ROFECOXIB [Suspect]
     Indication: RHEUMATOID ARTHRITIS
     Dosage: ORAL
     Route: 048
     Dates: start: 19970101
  4. DIURETICS (DIURETICS) [Concomitant]
  5. BETAMETHASONE [Concomitant]

REACTIONS (3)
  - CROHN'S DISEASE [None]
  - DRUG HYPERSENSITIVITY [None]
  - TRANSIENT ISCHAEMIC ATTACK [None]
